FAERS Safety Report 23750513 (Version 3)
Quarter: 2024Q2

REPORT INFORMATION
  Report Type: Spontaneous
  Country: DE (occurrence: DE)
  Receive Date: 20240417
  Receipt Date: 20240624
  Transmission Date: 20240716
  Serious: Yes (Other)
  Sender: FDA-Public Use
  Company Number: DE-AUROBINDO-AUR-APL-2024-017280

PATIENT
  Age: 75 Year
  Sex: Female
  Weight: 62 kg

DRUGS (4)
  1. MIRTAZAPINE [Suspect]
     Active Substance: MIRTAZAPINE
     Indication: Anxiety disorder
     Dosage: UNK
     Dates: start: 20240318, end: 20240401
  2. MIRTAZAPINE [Suspect]
     Active Substance: MIRTAZAPINE
     Indication: Depression
     Dosage: 1 DOSAGE FORM, EVERY MORNING (1 TABLET 1X IN THE EVENING AT 8 PM)
     Route: 048
     Dates: start: 20240325
  3. CANDESARTAN [Concomitant]
     Active Substance: CANDESARTAN
     Indication: Hypertension
     Dosage: UNK (1X 4 MG IN THE MORNING AND 1X 4 MG IN THE EVENING)
     Route: 048
  4. Tavor [Concomitant]
     Indication: Anxiety disorder
     Dosage: UNK (1X 0.5 MG IN THE EVENING AT 10 PM)
     Route: 048

REACTIONS (10)
  - Urinary retention [Unknown]
  - Anuria [Unknown]
  - Constipation [Unknown]
  - Attention deficit hyperactivity disorder [Unknown]
  - Muscular weakness [Unknown]
  - Disturbance in attention [Unknown]
  - Restlessness [Unknown]
  - Nervousness [Unknown]
  - Therapeutic response unexpected [Unknown]
  - Drug ineffective [Unknown]

NARRATIVE: CASE EVENT DATE: 20240301
